FAERS Safety Report 10084649 (Version 13)
Quarter: 2020Q3

REPORT INFORMATION
  Report Type: Report from Study
  Country: US (occurrence: US)
  Receive Date: 20140417
  Receipt Date: 20200828
  Transmission Date: 20201102
  Serious: Yes (Hospitalization, Other)
  Sender: FDA-Public Use
  Company Number: US-SANOFI-AVENTIS-2013SA062305

PATIENT
  Age: 62 Year
  Sex: Female

DRUGS (8)
  1. TERIFLUNOMIDE. [Suspect]
     Active Substance: TERIFLUNOMIDE
     Indication: MULTIPLE SCLEROSIS
     Dosage: 14 MG,QD
     Route: 048
     Dates: start: 20130103, end: 201301
  2. NORVASC [Concomitant]
     Active Substance: AMLODIPINE BESYLATE
     Dosage: 2.5 MG
  3. TERIFLUNOMIDE. [Suspect]
     Active Substance: TERIFLUNOMIDE
     Dosage: 14 MG, QD
     Route: 048
     Dates: start: 20130123, end: 20160830
  4. ESCITALOPRAM OXALATE. [Concomitant]
     Active Substance: ESCITALOPRAM OXALATE
     Dosage: 20 MG
  5. ESTRADIOL. [Concomitant]
     Active Substance: ESTRADIOL
     Dosage: 2 MG
  6. TERIFLUNOMIDE. [Suspect]
     Active Substance: TERIFLUNOMIDE
     Dosage: 14 MG,QD
     Route: 048
     Dates: start: 2016, end: 20190331
  7. BUPROPION. [Concomitant]
     Active Substance: BUPROPION
     Dosage: 300 MG
  8. LISINOPRIL. [Concomitant]
     Active Substance: LISINOPRIL
     Dosage: 20?25 MG

REACTIONS (71)
  - Sciatica [Recovered/Resolved]
  - Pain [Recovered/Resolved]
  - Musculoskeletal pain [Recovered/Resolved]
  - Multiple sclerosis relapse [Recovered/Resolved]
  - Dyskinesia [Recovered/Resolved]
  - Blood cholesterol increased [Unknown]
  - Grip strength decreased [Unknown]
  - Peroneal nerve palsy [Unknown]
  - Urinary incontinence [Not Recovered/Not Resolved]
  - Nail bed disorder [Unknown]
  - Contusion [Not Recovered/Not Resolved]
  - Malaise [Not Recovered/Not Resolved]
  - Lip swelling [Not Recovered/Not Resolved]
  - Weight decreased [Not Recovered/Not Resolved]
  - Haemorrhagic stroke [Recovered/Resolved]
  - Weight bearing difficulty [Unknown]
  - Nasopharyngitis [Not Recovered/Not Resolved]
  - Pain [Unknown]
  - Blood triglycerides increased [Unknown]
  - Blood glucose increased [Not Recovered/Not Resolved]
  - Anger [Not Recovered/Not Resolved]
  - Paraesthesia [Unknown]
  - Cyst [Recovered/Resolved]
  - Limb injury [Not Recovered/Not Resolved]
  - Staphylococcal infection [Not Recovered/Not Resolved]
  - Multiple sclerosis [Unknown]
  - Speech disorder [Unknown]
  - Crying [Unknown]
  - Breast swelling [Unknown]
  - Headache [Not Recovered/Not Resolved]
  - Ligament sprain [Not Recovered/Not Resolved]
  - Anal incontinence [Not Recovered/Not Resolved]
  - Nausea [Not Recovered/Not Resolved]
  - Loss of consciousness [Not Recovered/Not Resolved]
  - Head injury [Not Recovered/Not Resolved]
  - Secondary progressive multiple sclerosis [Not Recovered/Not Resolved]
  - Feeling hot [Unknown]
  - Gait disturbance [Recovering/Resolving]
  - Nodule [Unknown]
  - Retching [Recovering/Resolving]
  - Stress [Unknown]
  - Fatigue [Not Recovered/Not Resolved]
  - Musculoskeletal pain [Recovering/Resolving]
  - Fall [Not Recovered/Not Resolved]
  - Head injury [Recovered/Resolved]
  - Feeling abnormal [Not Recovered/Not Resolved]
  - Weight increased [Unknown]
  - Temperature intolerance [Unknown]
  - Skin discolouration [Unknown]
  - Dry skin [Not Recovered/Not Resolved]
  - Insomnia [Not Recovered/Not Resolved]
  - Hypoaesthesia [Not Recovered/Not Resolved]
  - Fall [Recovered/Resolved]
  - Spinal cord injury [Unknown]
  - Thrombosis [Unknown]
  - Gait disturbance [Recovered/Resolved]
  - Back pain [Not Recovered/Not Resolved]
  - Multiple sclerosis relapse [Unknown]
  - Anxiety [Unknown]
  - White blood cell disorder [Unknown]
  - Asthenia [Unknown]
  - Gastric disorder [Recovering/Resolving]
  - Back pain [Unknown]
  - Hyperaesthesia [Unknown]
  - Haemorrhage [Recovered/Resolved]
  - Arthropathy [Unknown]
  - Concussion [Not Recovered/Not Resolved]
  - Oral mucosal blistering [Not Recovered/Not Resolved]
  - Urinary tract infection [Unknown]
  - Hypertension [Not Recovered/Not Resolved]
  - Product dose omission issue [Unknown]

NARRATIVE: CASE EVENT DATE: 201302
